FAERS Safety Report 5776915-9 (Version None)
Quarter: 2008Q2

REPORT INFORMATION
  Report Type: 
  Country: None (occurrence: None)
  Receive Date: 20080618
  Receipt Date: 20080207
  Transmission Date: 20081010
  Serious: Yes (Other)
  Sender: FDA-Public Use
  Company Number: B0501236A

PATIENT
  Age: 77 Year
  Sex: Female
  Weight: 68 kg

DRUGS (8)
  1. AVANDIA [Suspect]
     Dosage: 4MG TWICE PER DAY
     Route: 048
     Dates: start: 20070126, end: 20071215
  2. AMLOR [Concomitant]
     Route: 065
  3. SOTALOL HCL [Concomitant]
     Dosage: 40MG THREE TIMES PER DAY
     Route: 048
  4. BIPRETERAX [Concomitant]
     Route: 065
  5. FENOFIBRATE [Concomitant]
     Dosage: 200MG PER DAY
     Route: 065
  6. AMAREL [Concomitant]
     Route: 065
  7. REPAGLINIDE [Concomitant]
     Dosage: .5MG THREE TIMES PER DAY
     Route: 065
  8. PREVISCAN [Concomitant]
     Route: 065

REACTIONS (9)
  - ANAEMIA MACROCYTIC [None]
  - CARDIAC FAILURE CONGESTIVE [None]
  - DYSPNOEA [None]
  - FACE OEDEMA [None]
  - MITRAL VALVE INCOMPETENCE [None]
  - OEDEMA PERIPHERAL [None]
  - ORTHOPNOEA [None]
  - PLEURAL EFFUSION [None]
  - PULMONARY ARTERIAL HYPERTENSION [None]
